FAERS Safety Report 8113575-6 (Version None)
Quarter: 2011Q4

REPORT INFORMATION
  Report Type: 
  Country: None (occurrence: None)
  Receive Date: 20111227
  Receipt Date: 20111128
  Transmission Date: 20120403
  Serious: Yes (Other)
  Sender: FDA-Public Use
  Company Number: PHEH2011US02766

PATIENT
  Age: 29 Year
  Sex: Female

DRUGS (3)
  1. GILENYA [Suspect]
     Indication: MULTIPLE SCLEROSIS
     Dosage: 0.5 MG, QD, ORAL
     Route: 048
     Dates: start: 20110826
  2. TOPAMAX [Concomitant]
  3. WELLBUTRIN [Concomitant]

REACTIONS (7)
  - HEART RATE DECREASED [None]
  - WEIGHT DECREASED [None]
  - NAUSEA [None]
  - ABDOMINAL PAIN [None]
  - DIZZINESS [None]
  - DIARRHOEA [None]
  - MIGRAINE [None]
